FAERS Safety Report 23047699 (Version 2)
Quarter: 2024Q1

REPORT INFORMATION
  Report Type: Report from Study
  Country: DE (occurrence: DE)
  Receive Date: 20231010
  Receipt Date: 20240104
  Transmission Date: 20240410
  Serious: Yes (Hospitalization, Other)
  Sender: FDA-Public Use
  Company Number: DE-TAKEDA-2023TUS096984

PATIENT
  Age: 40 Year
  Sex: Female

DRUGS (8)
  1. TEDUGLUTIDE [Suspect]
     Active Substance: TEDUGLUTIDE
     Indication: Short-bowel syndrome
     Dosage: 2.6 MILLIGRAM, QD
     Route: 042
     Dates: start: 20150706
  2. TEDUGLUTIDE [Suspect]
     Active Substance: TEDUGLUTIDE
     Indication: Short-bowel syndrome
     Dosage: 2.6 MILLIGRAM, QD
     Route: 042
     Dates: start: 20150706
  3. TEDUGLUTIDE [Suspect]
     Active Substance: TEDUGLUTIDE
     Indication: Short-bowel syndrome
     Dosage: 2.6 MILLIGRAM, QD
     Route: 042
     Dates: start: 20150706
  4. TEDUGLUTIDE [Suspect]
     Active Substance: TEDUGLUTIDE
     Indication: Short-bowel syndrome
     Dosage: 2.6 MILLIGRAM, QD
     Route: 042
     Dates: start: 20150706
  5. ZINKAMIN [Concomitant]
     Indication: Zinc deficiency
     Dosage: 10 MILLIGRAM, QD
     Route: 048
     Dates: start: 20230118
  6. CHOLECALCIFEROL [Concomitant]
     Active Substance: CHOLECALCIFEROL
     Indication: Vitamin supplementation
     Dosage: 15 GTT DROPS, QD
     Route: 048
     Dates: start: 202205, end: 20230118
  7. Calcimed [Concomitant]
     Indication: Mineral supplementation
     Dosage: UNK UNK, QD
     Route: 048
     Dates: start: 202109, end: 20230118
  8. PREDNISOLONE [Concomitant]
     Active Substance: PREDNISOLONE
     Indication: Drug hypersensitivity
     Dosage: UNK
     Route: 048
     Dates: start: 2021, end: 2021

REACTIONS (1)
  - Vascular device infection [Recovered/Resolved]

NARRATIVE: CASE EVENT DATE: 20230501
